FAERS Safety Report 9032099 (Version 1)
Quarter: 2013Q1

REPORT INFORMATION
  Report Type: Spontaneous
  Country: CA (occurrence: CA)
  Receive Date: 20130122
  Receipt Date: 20130122
  Transmission Date: 20140127
  Serious: Yes (Other)
  Sender: FDA-Public Use
  Company Number: CA-ASTRAZENECA-2013SE02220

PATIENT
  Age: 59 Year
  Sex: Female

DRUGS (1)
  1. ARIMIDEX [Suspect]
     Indication: BREAST CANCER FEMALE
     Route: 048
     Dates: start: 2008

REACTIONS (4)
  - Lymphoedema [Unknown]
  - Hepatitis C virus test positive [Unknown]
  - Osteoporosis [Unknown]
  - Blood cholesterol increased [Unknown]
